FAERS Safety Report 10495218 (Version 1)
Quarter: 2014Q3

REPORT INFORMATION
  Report Type: Spontaneous
  Country: US (occurrence: None)
  Receive Date: 20140815
  Receipt Date: 20140815
  Transmission Date: 20150326
  Serious: Yes (Other)
  Sender: FDA-Public Use
  Company Number: ADR-2014-00397

PATIENT
  Age: 26 Year
  Sex: Male

DRUGS (3)
  1. DITROPAN [Suspect]
     Active Substance: OXYBUTYNIN CHLORIDE
  2. LIORESAL [Suspect]
     Active Substance: BACLOFEN
     Indication: MUSCLE SPASTICITY
     Dates: start: 2008
  3. MULTIVITAMIN [Suspect]
     Active Substance: VITAMINS

REACTIONS (5)
  - Pyrexia [None]
  - Wound dehiscence [None]
  - Implant site infection [None]
  - Implant site erosion [None]
  - Impaired healing [None]
